FAERS Safety Report 6070542-4 (Version None)
Quarter: 2009Q1

REPORT INFORMATION
  Report Type: 
  Country: None (occurrence: None)
  Receive Date: 20090209
  Receipt Date: 20090129
  Transmission Date: 20090719
  Serious: Yes (Other)
  Sender: FDA-Public Use
  Company Number: IT-ROCHE-611351

PATIENT

DRUGS (2)
  1. METHOXY POLYETHYLENE GLYCOL-EPOETIN BETA [Suspect]
     Route: 065
  2. DARBEPOETIN ALFA [Suspect]
     Route: 065

REACTIONS (1)
  - RENAL FAILURE CHRONIC [None]
